FAERS Safety Report 20406792 (Version 2)
Quarter: 2022Q2

REPORT INFORMATION
  Report Type: Spontaneous
  Country: US (occurrence: US)
  Receive Date: 20220131
  Receipt Date: 20220516
  Transmission Date: 20220720
  Serious: Yes (Hospitalization)
  Sender: FDA-Public Use
  Company Number: US-PFIZER INC-202101507116

PATIENT
  Age: 82 Year
  Sex: Female
  Weight: 51.71 kg

DRUGS (5)
  1. IBRANCE [Suspect]
     Active Substance: PALBOCICLIB
     Indication: Breast cancer metastatic
     Dosage: 125 MG, CYCLIC (THREE WEEKS AND THEN OFF ONE WEEK)
  2. ZOMETA [Concomitant]
     Active Substance: ZOLEDRONIC ACID
     Dosage: UNK
     Route: 042
  3. SODIUM CHLORIDE [Concomitant]
     Active Substance: SODIUM CHLORIDE
     Dosage: UNK
  4. ANASTROZOLE [Concomitant]
     Active Substance: ANASTROZOLE
     Dosage: 1 MG
  5. AQUAPHOR HEALING [Concomitant]
     Active Substance: PETROLATUM
     Dosage: 50 MG

REACTIONS (4)
  - Illness [Unknown]
  - Malaise [Unknown]
  - Alopecia [Unknown]
  - Dry skin [Unknown]
